FAERS Safety Report 9444175 (Version 1)
Quarter: 2013Q3

REPORT INFORMATION
  Report Type: Spontaneous
  Country: US (occurrence: None)
  Receive Date: 20130806
  Receipt Date: 20130806
  Transmission Date: 20140515
  Serious: Yes (Other)
  Sender: FDA-Public Use
  Company Number: None

PATIENT
  Age: 79 Year
  Sex: Female
  Weight: 79.38 kg

DRUGS (1)
  1. OLANZAPINE [Suspect]
     Indication: SCHIZOPHRENIA, PARANOID TYPE
     Dosage: 1 - 2 TABS QPM ORALLY
     Route: 048
     Dates: start: 20130323, end: 20130423

REACTIONS (6)
  - Paranoia [None]
  - Insomnia [None]
  - Product substitution issue [None]
  - Sedation [None]
  - Irritability [None]
  - Memory impairment [None]
